FAERS Safety Report 17183021 (Version 1)
Quarter: 2019Q4

REPORT INFORMATION
  Report Type: Spontaneous
  Country: US (occurrence: US)
  Receive Date: 20191220
  Receipt Date: 20191220
  Transmission Date: 20200122
  Serious: Yes (Disabling, Other)
  Sender: FDA-Public Use
  Company Number: US-FRESENIUS KABI-FK201914160

PATIENT
  Sex: Female

DRUGS (1)
  1. MAGNESIUM SULFATE (MANUFACTURER UNKNOWN) [Suspect]
     Active Substance: MAGNESIUM SULFATE
     Indication: SEIZURE PROPHYLAXIS
     Dosage: UNKNOWN
     Route: 065

REACTIONS (4)
  - Seizure [Recovered/Resolved]
  - Nervous system disorder [Not Recovered/Not Resolved]
  - Cerebrovascular accident [Not Recovered/Not Resolved]
  - Medication error [Not Recovered/Not Resolved]
